FAERS Safety Report 17913036 (Version 2)
Quarter: 2020Q3

REPORT INFORMATION
  Report Type: Report from Study
  Country: US (occurrence: US)
  Receive Date: 20200618
  Receipt Date: 20200820
  Transmission Date: 20201103
  Serious: Yes (Other)
  Sender: FDA-Public Use
  Company Number: US-SHIRE-US202019868

PATIENT
  Sex: Female
  Weight: 79.37 kg

DRUGS (1)
  1. HUMAN NORMAL IMMUNOGLOBULIN; LIQUID [Suspect]
     Active Substance: HUMAN IMMUNOGLOBULIN G
     Indication: IMMUNODEFICIENCY COMMON VARIABLE
     Route: 042

REACTIONS (13)
  - Subcutaneous abscess [Unknown]
  - Oropharyngeal pain [Unknown]
  - Bronchitis [Recovered/Resolved]
  - Fatigue [Unknown]
  - Burns second degree [Unknown]
  - Migraine [Unknown]
  - Illness [Recovered/Resolved]
  - Respiratory tract infection viral [Unknown]
  - Pain [Unknown]
  - Depression [Unknown]
  - Immunoglobulins decreased [Unknown]
  - Pneumonia [Unknown]
  - Viral infection [Unknown]
